FAERS Safety Report 8837064 (Version 1)
Quarter: 2012Q4

REPORT INFORMATION
  Report Type: Spontaneous
  Country: US (occurrence: None)
  Receive Date: 20121011
  Receipt Date: 20121011
  Transmission Date: 20130627
  Serious: No
  Sender: FDA-Public Use
  Company Number: None

PATIENT
  Age: 49 Year
  Sex: Female
  Weight: 67.59 kg

DRUGS (4)
  1. PRILOSEC [Suspect]
     Indication: PEPTIC ULCER
     Route: 048
     Dates: start: 19990201, end: 19990425
  2. PRILOSEC [Suspect]
     Indication: PEPTIC ULCER
  3. PRILOSEC [Suspect]
     Indication: INDIGESTION
     Dates: start: 19990705, end: 19991015
  4. PRILOSEC [Suspect]
     Indication: HEARTBURN
     Dates: start: 19990705, end: 19991015

REACTIONS (14)
  - Pruritus [None]
  - Abdominal pain upper [None]
  - Gait disturbance [None]
  - Restlessness [None]
  - Activities of daily living impaired [None]
  - Erythema [None]
  - Oedema peripheral [None]
  - Swelling face [None]
  - Nausea [None]
  - Urticaria [None]
  - Vomiting [None]
  - Ovarian cyst ruptured [None]
  - Nephrolithiasis [None]
  - Carcinoid tumour [None]
